FAERS Safety Report 6638182-3 (Version None)
Quarter: 2010Q1

REPORT INFORMATION
  Report Type: 
  Country: None (occurrence: None)
  Receive Date: 20100317
  Receipt Date: 20100315
  Transmission Date: 20100710
  Serious: Yes (Hospitalization)
  Sender: FDA-Public Use
  Company Number: A0850175A

PATIENT
  Age: 33 Year
  Sex: Female
  Weight: 68.2 kg

DRUGS (3)
  1. ALLI [Suspect]
     Indication: WEIGHT LOSS DIET
     Dates: start: 20080104
  2. MULTI-VITAMIN [Concomitant]
     Route: 048
  3. FISH OIL [Concomitant]
     Route: 048

REACTIONS (3)
  - DIVERTICULITIS [None]
  - LARGE INTESTINE PERFORATION [None]
  - PAIN [None]
